FAERS Safety Report 8283730-3 (Version None)
Quarter: 2012Q2

REPORT INFORMATION
  Report Type: 
  Country: None (occurrence: None)
  Receive Date: 20120413
  Receipt Date: 20111020
  Transmission Date: 20120825
  Serious: No
  Sender: FDA-Public Use
  Company Number: US-ASTRAZENECA-2011SE63494

PATIENT
  Age: 65 Year
  Sex: Male
  Weight: 88.5 kg

DRUGS (3)
  1. LIBRAX [Concomitant]
     Indication: MUSCLE RELAXANT THERAPY
  2. NEXIUM [Suspect]
     Indication: GASTROOESOPHAGEAL REFLUX DISEASE
     Route: 048
     Dates: start: 20050101
  3. CAREFATE [Concomitant]
     Indication: ABDOMINAL PAIN UPPER

REACTIONS (3)
  - INCORRECT DRUG ADMINISTRATION DURATION [None]
  - ABDOMINAL PAIN UPPER [None]
  - OFF LABEL USE [None]
